FAERS Safety Report 17607891 (Version 1)
Quarter: 2020Q1

REPORT INFORMATION
  Report Type: Spontaneous
  Country: US (occurrence: US)
  Receive Date: 20200331
  Receipt Date: 20200331
  Transmission Date: 20200409
  Serious: Yes (Other)
  Sender: FDA-Public Use
  Company Number: US-BAUSCH-BL-2020-008667

PATIENT
  Age: 72 Year
  Sex: Female

DRUGS (2)
  1. SOOTHE LONG LASTING (PRESERVATIVE FREE) [Suspect]
     Active Substance: GLYCERIN\PROPYLENE GLYCOL
     Indication: DRY EYE
     Dosage: STARTED: APPROX 1 MONTH PRIOR, 2 DROPS IN LEFT EYE, 3 DROPS IN RIGHT EYE DAILY,
     Route: 047
     Dates: start: 2020, end: 2020
  2. SOOTHE LONG LASTING (PRESERVATIVE FREE) [Suspect]
     Active Substance: GLYCERIN\PROPYLENE GLYCOL
     Dosage: RESTARTED THE PRODUCT, 2 DROPS IN LEFT EYE, 3 DROPS IN RIGHT EYE DAILY
     Route: 047
     Dates: start: 2020, end: 2020

REACTIONS (1)
  - Eye haemorrhage [Recovered/Resolved]

NARRATIVE: CASE EVENT DATE: 2020
